FAERS Safety Report 25365823 (Version 3)
Quarter: 2025Q2

REPORT INFORMATION
  Report Type: Spontaneous
  Country: US (occurrence: US)
  Receive Date: 20250528
  Receipt Date: 20250624
  Transmission Date: 20250717
  Serious: No
  Sender: SANOFI AVENTIS
  Company Number: US-SA-2025SA149937

PATIENT
  Age: 19 Year
  Sex: Female

DRUGS (2)
  1. DUPIXENT [Suspect]
     Active Substance: DUPILUMAB
     Indication: Dermatitis atopic
     Route: 058
     Dates: start: 20250326, end: 20250326
  2. DUPIXENT [Suspect]
     Active Substance: DUPILUMAB
     Dosage: 300 MG, QOW
     Route: 058
     Dates: start: 202504, end: 20250523

REACTIONS (16)
  - Rebound atopic dermatitis [Unknown]
  - Pain [Recovered/Resolved]
  - Loss of personal independence in daily activities [Unknown]
  - Nausea [Unknown]
  - Pyrexia [Unknown]
  - Contusion [Unknown]
  - Periorbital swelling [Unknown]
  - Lichenification [Unknown]
  - Malaise [Unknown]
  - Urticaria [Unknown]
  - Ocular hyperaemia [Recovered/Resolved]
  - Skin exfoliation [Unknown]
  - Dizziness [Unknown]
  - Myalgia [Unknown]
  - Rash [Recovered/Resolved]
  - Eye irritation [Recovered/Resolved]

NARRATIVE: CASE EVENT DATE: 20250101
